FAERS Safety Report 8235772-1 (Version None)
Quarter: 2012Q1

REPORT INFORMATION
  Report Type: 
  Country: None (occurrence: None)
  Receive Date: 20120326
  Receipt Date: 20120319
  Transmission Date: 20120608
  Serious: Yes (Other)
  Sender: FDA-Public Use
  Company Number: PHHY2012AU002929

PATIENT
  Sex: Female

DRUGS (6)
  1. ZOLEDRONOC ACID [Suspect]
     Dosage: 5 MG, UNK
     Route: 042
     Dates: start: 20101221
  2. CALTRATE PLUS [Concomitant]
     Dosage: 1500 MG, UNK
     Route: 048
  3. FLUTICASONE PROPIONATE/SALMETEROL [Concomitant]
     Dosage: 250 UG, UNK
  4. ASPIRIN [Concomitant]
     Dosage: 100 MG, UNK
     Route: 048
  5. ATACAND [Concomitant]
     Dosage: 16 MG, UNK
     Route: 048
  6. SIMVASTATIN [Concomitant]
     Dosage: 20 MG, UNK
     Route: 048

REACTIONS (6)
  - PAIN [None]
  - SENSATION OF HEAVINESS [None]
  - MUSCLE SPASMS [None]
  - BACK PAIN [None]
  - CEREBROVASCULAR ACCIDENT [None]
  - DRUG HYPERSENSITIVITY [None]
